FAERS Safety Report 13828859 (Version 1)
Quarter: 2017Q3

REPORT INFORMATION
  Report Type: Spontaneous
  Country: US (occurrence: US)
  Receive Date: 20170802
  Receipt Date: 20170802
  Transmission Date: 20171127
  Serious: Yes (Life-Threatening)
  Sender: FDA-Public Use
  Company Number: None

PATIENT
  Age: 69 Year
  Sex: Female

DRUGS (9)
  1. CARBAMAZEPINE. [Concomitant]
     Active Substance: CARBAMAZEPINE
  2. BETAINE [Concomitant]
     Active Substance: BETAINE
  3. GILENYA [Suspect]
     Active Substance: FINGOLIMOD HYDROCHLORIDE
     Indication: MULTIPLE SCLEROSIS
     Route: 048
     Dates: start: 20141113, end: 20170721
  4. LIPITOR [Concomitant]
     Active Substance: ATORVASTATIN CALCIUM
  5. BENAZAPRIL-HYDROCHLOROTHIAZIDE [Concomitant]
  6. CALCIUM [Concomitant]
     Active Substance: CALCIUM
  7. ZINC. [Concomitant]
     Active Substance: ZINC
  8. TEGRETOL [Concomitant]
     Active Substance: CARBAMAZEPINE
  9. MAGNESIUM [Concomitant]
     Active Substance: MAGNESIUM

REACTIONS (1)
  - Colon cancer [None]

NARRATIVE: CASE EVENT DATE: 20170801
